FAERS Safety Report 17790676 (Version 1)
Quarter: 2020Q2

REPORT INFORMATION
  Report Type: Spontaneous
  Country: US (occurrence: US)
  Receive Date: 20200514
  Receipt Date: 20200514
  Transmission Date: 20200714
  Serious: No
  Sender: FDA-Public Use
  Company Number: None

PATIENT
  Age: 46 Year
  Sex: Male

DRUGS (1)
  1. SPRYCEL [Suspect]
     Active Substance: DASATINIB
     Route: 048
     Dates: start: 202001, end: 202005

REACTIONS (3)
  - Pneumonia [None]
  - Cellulitis [None]
  - Fluid retention [None]

NARRATIVE: CASE EVENT DATE: 20200514
